FAERS Safety Report 8218652-7 (Version None)
Quarter: 2012Q1

REPORT INFORMATION
  Report Type: 
  Country: None (occurrence: None)
  Receive Date: 20120319
  Receipt Date: 20120309
  Transmission Date: 20120608
  Serious: Yes (Hospitalization, Other)
  Sender: FDA-Public Use
  Company Number: PHHY2012TR021476

PATIENT
  Sex: Male
  Weight: 25 kg

DRUGS (1)
  1. EXJADE [Suspect]
     Indication: IRON OVERLOAD
     Dosage: 750 MG, PER DAY
     Route: 048
     Dates: start: 20111228, end: 20111229

REACTIONS (2)
  - OTITIS MEDIA [None]
  - ADENOIDAL HYPERTROPHY [None]
